FAERS Safety Report 11254221 (Version 2)
Quarter: 2015Q3

REPORT INFORMATION
  Report Type: Spontaneous
  Country: AR (occurrence: AR)
  Receive Date: 20150709
  Receipt Date: 20150710
  Transmission Date: 20151125
  Serious: Yes (Death, Hospitalization)
  Sender: FDA-Public Use
  Company Number: AR-SA-2015SA089683

PATIENT
  Age: 56 Year
  Sex: Female
  Weight: 70 kg

DRUGS (3)
  1. LEMTRADA [Suspect]
     Active Substance: ALEMTUZUMAB
     Indication: MULTIPLE SCLEROSIS
     Route: 042
     Dates: start: 20150420, end: 20150424
  2. LEVETIRACETAM. [Concomitant]
     Active Substance: LEVETIRACETAM
     Indication: EPILEPSY
     Route: 048
     Dates: end: 20150626
  3. BACTRIM [Concomitant]
     Active Substance: SULFAMETHOXAZOLE\TRIMETHOPRIM
     Indication: NEUROGENIC BLADDER
     Route: 048
     Dates: end: 20150626

REACTIONS (20)
  - Sleep talking [Unknown]
  - Feeling hot [Unknown]
  - Eructation [Unknown]
  - Pneumonia aspiration [Fatal]
  - Pneumonia [Not Recovered/Not Resolved]
  - Dysphonia [Unknown]
  - Photosensitivity reaction [Not Recovered/Not Resolved]
  - Blood thyroid stimulating hormone decreased [Not Recovered/Not Resolved]
  - Somnolence [Not Recovered/Not Resolved]
  - Hiccups [Unknown]
  - Tremor [Not Recovered/Not Resolved]
  - Vomiting [Recovering/Resolving]
  - Nausea [Unknown]
  - Memory impairment [Not Recovered/Not Resolved]
  - Fatigue [Not Recovered/Not Resolved]
  - Pain [Unknown]
  - Visual acuity reduced [Unknown]
  - Limb discomfort [Unknown]
  - Pain in extremity [Unknown]
  - Dizziness [Not Recovered/Not Resolved]

NARRATIVE: CASE EVENT DATE: 2015
